FAERS Safety Report 16996354 (Version 1)
Quarter: 2019Q4

REPORT INFORMATION
  Report Type: Spontaneous
  Country: US (occurrence: US)
  Receive Date: 20191105
  Receipt Date: 20191105
  Transmission Date: 20200122
  Serious: No
  Sender: FDA-Public Use
  Company Number: US-RADIUS HEALTH INC.-2019US002675

PATIENT
  Sex: Female

DRUGS (1)
  1. TYMLOS [Suspect]
     Active Substance: ABALOPARATIDE
     Indication: OSTEOPOROSIS POSTMENOPAUSAL
     Dosage: 80MCG, QD
     Route: 058
     Dates: start: 20181113

REACTIONS (10)
  - Product quality issue [Unknown]
  - Incorrect dose administered by device [Not Recovered/Not Resolved]
  - Accidental overdose [Recovered/Resolved]
  - Memory impairment [Not Recovered/Not Resolved]
  - Multiple drug therapy [Recovered/Resolved]
  - Product dose omission [Not Recovered/Not Resolved]
  - Pain [Recovered/Resolved]
  - Confusional state [Not Recovered/Not Resolved]
  - Wrong technique in device usage process [Recovered/Resolved]
  - Injury associated with device [Recovered/Resolved]
